APPROVED DRUG PRODUCT: VENOFER
Active Ingredient: IRON SUCROSE
Strength: EQ 75MG IRON/3.75ML (EQ 20MG IRON/ML)
Dosage Form/Route: INJECTABLE;INTRAVENOUS
Application: N021135 | Product #003
Applicant: AMERICAN REGENT INC
Approved: Mar 29, 2005 | RLD: No | RS: No | Type: DISCN